FAERS Safety Report 4650350-9 (Version None)
Quarter: 2005Q2

REPORT INFORMATION
  Report Type: 
  Country: None (occurrence: None)
  Receive Date: 20050429
  Receipt Date: 20050414
  Transmission Date: 20051028
  Serious: Yes (Other)
  Sender: FDA-Public Use
  Company Number: B0377856A

PATIENT
  Age: 41 Year
  Sex: Male

DRUGS (7)
  1. ZIAGEN [Suspect]
     Indication: HIV INFECTION
  2. EPIVIR [Suspect]
     Indication: HIV INFECTION
  3. STAVUDINE [Suspect]
     Indication: HIV INFECTION
  4. CORTICOSTEROID [Concomitant]
  5. VITAMIN D [Concomitant]
  6. COTRIM [Concomitant]
  7. ANTI-TB MEDICATION [Concomitant]

REACTIONS (7)
  - CONDITION AGGRAVATED [None]
  - CONFUSIONAL STATE [None]
  - DISSEMINATED TUBERCULOSIS [None]
  - HYPERCALCAEMIA [None]
  - LUNG INFILTRATION [None]
  - PYREXIA [None]
  - RENAL FAILURE [None]
